FAERS Safety Report 25182212 (Version 4)
Quarter: 2025Q2

REPORT INFORMATION
  Report Type: Spontaneous
  Country: BR (occurrence: BR)
  Receive Date: 20250410
  Receipt Date: 20250626
  Transmission Date: 20250717
  Serious: Yes (Disabling)
  Sender: ABBVIE
  Company Number: BR-ABBVIE-6189219

PATIENT
  Age: 60 Year
  Sex: Female

DRUGS (6)
  1. LUMIGAN [Suspect]
     Active Substance: BIMATOPROST
     Indication: Glaucoma
     Dosage: 2 DROPS DURING THE DAY AND 2 DROPS AT NIGHT ON BOTH EYES, EYE TOPIC?LUMIGAN RC - VIAL. WITH/3ML
     Route: 047
  2. LUMIGAN [Suspect]
     Active Substance: BIMATOPROST
     Route: 047
  3. Viofta [Concomitant]
     Indication: Product used for unknown indication
     Dosage: APPLY 01 DROP IN EACH EYE EVERY 4 HOURS FOR 15 DAYS
     Route: 047
  4. NAPROXEN [Concomitant]
     Active Substance: NAPROXEN
     Indication: Product used for unknown indication
     Dosage: 01 TABLET FOR DAY FOR 05 DAYS
     Route: 048
  5. DIPYRONE [Concomitant]
     Active Substance: DIPYRONE
     Indication: Pain
     Dosage: 1 TABLET EVERY 6 HOURS
     Route: 048
  6. CARBOMER [Concomitant]
     Active Substance: CARBOMER
     Indication: Product used for unknown indication
     Dosage: APPLY 01 DROP IN EACH EYE EVERY 12 HOURS FOR 15 DAYS
     Route: 047

REACTIONS (14)
  - Visual impairment [Unknown]
  - Eye inflammation [Unknown]
  - Eye irritation [Not Recovered/Not Resolved]
  - Vision blurred [Not Recovered/Not Resolved]
  - Headache [Not Recovered/Not Resolved]
  - Lacrimation increased [Not Recovered/Not Resolved]
  - Eye disorder [Not Recovered/Not Resolved]
  - Anxiety [Not Recovered/Not Resolved]
  - Insomnia [Not Recovered/Not Resolved]
  - Eye pain [Unknown]
  - Ear pain [Unknown]
  - Incorrect dose administered [Unknown]
  - Vitreous floaters [Unknown]
  - Product lot number issue [Unknown]

NARRATIVE: CASE EVENT DATE: 20250318
